FAERS Safety Report 8403999 (Version 2)
Quarter: 2013Q2

REPORT INFORMATION
  Report Type: Spontaneous
  Country: US (occurrence: None)
  Receive Date: 20111223
  Receipt Date: 20121218
  Transmission Date: 20140414
  Serious: Yes (Other)
  Sender: FDA-Public Use
  Company Number: PHEH2011US07564

PATIENT
  Sex: Female

DRUGS (2)
  1. FEMARA [Suspect]
  2. LETROZOLE [Suspect]

REACTIONS (3)
  - METASTASES TO BONE [None]
  - MOOD SWINGS [None]
  - PAIN [None]
